FAERS Safety Report 5849470-2 (Version None)
Quarter: 2008Q3

REPORT INFORMATION
  Report Type: 
  Country: None (occurrence: None)
  Receive Date: 20080819
  Receipt Date: 20080813
  Transmission Date: 20090109
  Serious: Yes (Death, Hospitalization)
  Sender: FDA-Public Use
  Company Number: US-JNJFOC-20080803521

PATIENT
  Sex: Male
  Weight: 67.13 kg

DRUGS (6)
  1. DURAGESIC-100 [Suspect]
     Route: 062
  2. DURAGESIC-100 [Suspect]
     Indication: PAIN
     Route: 062
  3. AMBIEN [Suspect]
     Indication: COLONOSCOPY
     Route: 065
  4. ATIVAN [Suspect]
     Indication: COLONOSCOPY
     Route: 065
  5. DILAUDID [Suspect]
     Indication: COLONOSCOPY
     Route: 065
  6. BENADRYL [Suspect]
     Indication: COLONOSCOPY
     Route: 065

REACTIONS (7)
  - AGGRESSION [None]
  - AGITATION [None]
  - COMA [None]
  - HEPATIC FAILURE [None]
  - HEPATITIS [None]
  - ISCHAEMIC HEPATITIS [None]
  - RESPIRATORY FAILURE [None]
